FAERS Safety Report 10960664 (Version 1)
Quarter: 2015Q1

REPORT INFORMATION
  Report Type: Spontaneous
  Country: US (occurrence: US)
  Receive Date: 20150327
  Receipt Date: 20150327
  Transmission Date: 20150721
  Serious: Yes (Death)
  Sender: FDA-Public Use
  Company Number: US-SA-2015SA002899

PATIENT
  Age: 71 Year
  Sex: Male
  Weight: 77.5 kg

DRUGS (7)
  1. MUCINEX [Concomitant]
     Active Substance: GUAIFENESIN
  2. AMARYL [Suspect]
     Active Substance: GLIMEPIRIDE
     Route: 065
  3. OXYCODONE [Concomitant]
     Active Substance: OXYCODONE
  4. ZOFRAN [Concomitant]
     Active Substance: ONDANSETRON HYDROCHLORIDE
     Indication: ABDOMINAL DISCOMFORT
  5. SUTENT [Concomitant]
     Active Substance: SUNITINIB MALATE
     Dates: start: 20131007
  6. PRADAXA [Concomitant]
     Active Substance: DABIGATRAN ETEXILATE MESYLATE
  7. FLONASE [Concomitant]
     Active Substance: FLUTICASONE PROPIONATE

REACTIONS (2)
  - Blood glucose decreased [Unknown]
  - Death [Fatal]

NARRATIVE: CASE EVENT DATE: 20150203
